FAERS Safety Report 8443688 (Version 6)
Quarter: 2015Q4

REPORT INFORMATION
  Report Type: Report from Study
  Country: AU (occurrence: AU)
  Receive Date: 20120306
  Receipt Date: 20151002
  Transmission Date: 20160305
  Serious: Yes (Other)
  Sender: FDA-Public Use
  Company Number: PHHY2012AU014299

PATIENT
  Age: 46 Year
  Sex: Female

DRUGS (14)
  1. CLOZARIL [Suspect]
     Active Substance: CLOZAPINE
     Indication: PRODUCT USED FOR UNKNOWN INDICATION
     Dosage: UNK
     Route: 065
     Dates: start: 20040204
  2. CLOZARIL [Suspect]
     Active Substance: CLOZAPINE
     Dosage: 300 MG, UNK
     Route: 065
     Dates: start: 20110719, end: 20110725
  3. CLOZARIL [Suspect]
     Active Substance: CLOZAPINE
     Dosage: 450 MG, UNK
     Route: 065
     Dates: start: 20120220
  4. CLOZARIL [Suspect]
     Active Substance: CLOZAPINE
     Dosage: 475 MG, UNK
     Route: 065
     Dates: start: 20111215, end: 20120217
  5. CLOPINE [Suspect]
     Active Substance: CLOZAPINE
     Indication: PRODUCT USED FOR UNKNOWN INDICATION
     Dosage: 400 MG, QD
     Route: 065
  6. CLOZARIL [Suspect]
     Active Substance: CLOZAPINE
     Dosage: 800 MG, UNK
     Route: 065
     Dates: start: 20070821, end: 20091102
  7. CLOZARIL [Suspect]
     Active Substance: CLOZAPINE
     Dosage: 650 MG, UNK
     Route: 065
     Dates: start: 20101018, end: 20110530
  8. CLOZARIL [Suspect]
     Active Substance: CLOZAPINE
     Dosage: 400 MG, UNK
     Route: 065
     Dates: start: 20110801, end: 20110905
  9. CLOZARIL [Suspect]
     Active Substance: CLOZAPINE
     Dosage: 450 MG, DAILY
     Route: 065
     Dates: start: 20050223
  10. CLOZARIL [Suspect]
     Active Substance: CLOZAPINE
     Dosage: 200 MG, UNK
     Route: 065
     Dates: start: 20110704, end: 20110718
  11. CLOZARIL [Suspect]
     Active Substance: CLOZAPINE
     Dosage: 700 MG, UNK
     Route: 065
     Dates: start: 20100727, end: 20100921
  12. CLOZARIL [Suspect]
     Active Substance: CLOZAPINE
     Dosage: 750 MG, UNK
     Route: 065
     Dates: start: 20091130, end: 20100628
  13. CLOZARIL [Suspect]
     Active Substance: CLOZAPINE
     Dosage: 750 MG, UNK
     Route: 065
     Dates: start: 20070206, end: 20070727
  14. CLOZARIL [Suspect]
     Active Substance: CLOZAPINE
     Dosage: 500 MG, UNK
     Route: 065
     Dates: start: 20110920, end: 20111123

REACTIONS (7)
  - Neutropenia [Recovered/Resolved]
  - Antipsychotic drug level above therapeutic [Not Recovered/Not Resolved]
  - Lymphopenia [Recovered/Resolved]
  - Thrombocytopenia [Recovered/Resolved]
  - White blood cell count decreased [Recovered/Resolved]
  - Paranoia [Unknown]
  - Burkitt^s lymphoma [Unknown]

NARRATIVE: CASE EVENT DATE: 20110707
